FAERS Safety Report 9169030 (Version 2)
Quarter: 2013Q1

REPORT INFORMATION
  Report Type: Spontaneous
  Country: US (occurrence: None)
  Receive Date: 20130308
  Receipt Date: 20130322
  Transmission Date: 20140127
  Serious: Yes (Other)
  Sender: FDA-Public Use
  Company Number: US-CLINIGEN HEALTHCARE LIMITED-003046

PATIENT
  Age: 14 Month
  Sex: 0

DRUGS (3)
  1. FOSCAVIR [Suspect]
     Indication: FEBRILE CONVULSION
  2. IMMUNOGLOBULIN(IMMUNOGLOBULIN) [Concomitant]
  3. LEVETIRACETAM(LEVETIRACETAM) [Concomitant]

REACTIONS (11)
  - Developmental delay [None]
  - Speech disorder [None]
  - Herpes simplex meningoencephalitis [None]
  - Off label use [None]
  - Chorea [None]
  - Human herpesvirus 6 infection [None]
  - Somnolence [None]
  - Hypotonia [None]
  - Rash maculo-papular [None]
  - Oedema [None]
  - Convulsion [None]
